FAERS Safety Report 9400429 (Version 1)
Quarter: 2013Q3

REPORT INFORMATION
  Report Type: Spontaneous
  Country: US (occurrence: None)
  Receive Date: 20130712
  Receipt Date: 20130712
  Transmission Date: 20140515
  Serious: Yes (Disabling, Other)
  Sender: FDA-Public Use
  Company Number: None

PATIENT
  Age: 60 None
  Sex: Male

DRUGS (12)
  1. ZETIA [Suspect]
     Indication: BLOOD CHOLESTEROL ABNORMAL
     Route: 048
     Dates: start: 20120813, end: 20130503
  2. LEVOTHYROXINE [Concomitant]
  3. ASPIRIN [Concomitant]
  4. OMEPRAZOLE [Concomitant]
  5. ENALAPRIL [Suspect]
  6. GABAPENTIN [Concomitant]
  7. CLARITIN [Concomitant]
  8. CIALIS [Concomitant]
  9. FISH OIL [Concomitant]
  10. VIT D [Concomitant]
  11. GROUND FLAX [Concomitant]
  12. NIACIN [Concomitant]

REACTIONS (3)
  - Polyneuropathy [None]
  - Condition aggravated [None]
  - Fatigue [None]
